FAERS Safety Report 9177693 (Version 2)
Quarter: 2013Q1

REPORT INFORMATION
  Report Type: Spontaneous
  Country: IT (occurrence: None)
  Receive Date: 20130319
  Receipt Date: 20130329
  Transmission Date: 20140127
  Serious: Yes (Other)
  Sender: FDA-Public Use
  Company Number: AUR-APL-2013-02319

PATIENT
  Age: 40 Year
  Sex: Female

DRUGS (1)
  1. RAMIPRIL [Suspect]
     Indication: PRODUCT USED FOR UNKNOWN INDICATION
     Dosage: UNKNOWN

REACTIONS (4)
  - Arrhythmia [None]
  - Dyspnoea [None]
  - Panic attack [None]
  - Pain in extremity [None]
